FAERS Safety Report 8125929-2 (Version None)
Quarter: 2012Q1

REPORT INFORMATION
  Report Type: 
  Country: None (occurrence: None)
  Receive Date: 20120209
  Receipt Date: 20120125
  Transmission Date: 20120608
  Serious: Yes (Hospitalization)
  Sender: FDA-Public Use
  Company Number: JP-ROCHE-1037066

PATIENT
  Sex: Male

DRUGS (8)
  1. METHYLPREDNISOLONE [Suspect]
     Indication: PROPHYLAXIS AGAINST TRANSPLANT REJECTION
     Route: 048
     Dates: start: 20111229, end: 20120117
  2. ACETAMINOPHEN [Concomitant]
     Dosage: GIVEN PRIOR TO EACH RITUXIMAB INFUSION
     Route: 048
     Dates: start: 20120111
  3. CARVEDILOL [Concomitant]
     Indication: HYPERTENSION
     Route: 048
  4. MYCOPHENOLATE MOFETIL [Suspect]
     Indication: PROPHYLAXIS AGAINST TRANSPLANT REJECTION
     Route: 048
     Dates: start: 20111229, end: 20120117
  5. LASIX [Concomitant]
     Indication: RENAL FAILURE CHRONIC
     Route: 048
     Dates: end: 20120117
  6. MABTHERA [Suspect]
     Indication: PROPHYLAXIS AGAINST TRANSPLANT REJECTION
     Route: 042
     Dates: start: 20120111
  7. VALSARTAN [Concomitant]
     Indication: HYPERTENSION
     Route: 048
  8. POLARAMINE [Concomitant]
     Dosage: GIVEN PRIOR TO EACH RITUXIMAB INFUSION
     Route: 048
     Dates: start: 20120111

REACTIONS (1)
  - SMALL INTESTINAL HAEMORRHAGE [None]
